FAERS Safety Report 13679260 (Version 7)
Quarter: 2017Q3

REPORT INFORMATION
  Report Type: Report from Study
  Country: US (occurrence: US)
  Receive Date: 20170622
  Receipt Date: 20170920
  Transmission Date: 20171127
  Serious: Yes (Other)
  Sender: FDA-Public Use
  Company Number: US-PFIZER INC-2017216138

PATIENT
  Age: 49 Year
  Sex: Female

DRUGS (4)
  1. FASLODEX [Suspect]
     Active Substance: FULVESTRANT
     Indication: BREAST CANCER METASTATIC
     Dosage: UNK
     Dates: start: 20170428
  2. FASLODEX [Suspect]
     Active Substance: FULVESTRANT
     Dosage: UNK
     Dates: start: 20170512
  3. IBRANCE [Suspect]
     Active Substance: PALBOCICLIB
     Dosage: 100 MG, CYCLIC, DAILY (21 DAYS ON AND 7 DAYS OFF)
     Route: 048
     Dates: start: 20170718, end: 201708
  4. IBRANCE [Suspect]
     Active Substance: PALBOCICLIB
     Indication: BREAST CANCER METASTATIC
     Dosage: 100 MG, CYCLIC, DAILY (21 DAYS ON AND 7 DAYS OFF)
     Route: 048
     Dates: start: 20170514, end: 20170530

REACTIONS (6)
  - Platelet count decreased [Unknown]
  - Dizziness [Recovering/Resolving]
  - Pulmonary oedema [Recovering/Resolving]
  - Dysphonia [Not Recovered/Not Resolved]
  - White blood cell count decreased [Recovering/Resolving]
  - Dry skin [Recovered/Resolved]

NARRATIVE: CASE EVENT DATE: 2017
